FAERS Safety Report 20872049 (Version 1)
Quarter: 2022Q2

REPORT INFORMATION
  Report Type: Spontaneous
  Country: US (occurrence: US)
  Receive Date: 20220525
  Receipt Date: 20220525
  Transmission Date: 20220721
  Serious: No
  Sender: FDA-Public Use
  Company Number: US-GILEAD-2022-0583058

PATIENT
  Age: 51 Year
  Sex: Male

DRUGS (3)
  1. VIREAD [Suspect]
     Active Substance: TENOFOVIR DISOPROXIL FUMARATE
     Indication: Hepatitis B
     Dosage: 300 MG, QD
     Route: 065
     Dates: start: 201212
  2. VIT D [VITAMIN D NOS] [Concomitant]
  3. CALCIUM [Concomitant]
     Active Substance: CALCIUM

REACTIONS (1)
  - Tinnitus [Unknown]

NARRATIVE: CASE EVENT DATE: 20180101
